FAERS Safety Report 9848412 (Version 1)
Quarter: 2013Q4

REPORT INFORMATION
  Report Type: Spontaneous
  Country: US (occurrence: None)
  Receive Date: 20131224
  Receipt Date: 20131224
  Transmission Date: 20140711
  Serious: Yes (Other)
  Sender: FDA-Public Use
  Company Number: PHEH2013US001304

PATIENT
  Age: 29 Year
  Sex: Male
  Weight: 110 kg

DRUGS (2)
  1. EXJADE (*CGP 72670*) DISPERSIBLE TABLET [Suspect]
     Indication: ACUTE LEUKAEMIA
     Route: 048
     Dates: start: 20120723, end: 20120813
  2. CHEMOTHERAPEUTICS [Suspect]

REACTIONS (1)
  - Platelet count decreased [None]
